FAERS Safety Report 15264086 (Version 1)
Quarter: 2018Q3

REPORT INFORMATION
  Report Type: Spontaneous
  Country: US (occurrence: US)
  Receive Date: 20180721
  Receipt Date: 20180721
  Transmission Date: 20181010
  Serious: Yes (Disabling)
  Sender: FDA-Public Use
  Company Number: None

PATIENT
  Age: 71 Year
  Sex: Female
  Weight: 48.6 kg

DRUGS (10)
  1. REQUIP [Concomitant]
     Active Substance: ROPINIROLE HYDROCHLORIDE
  2. EVOXAC [Concomitant]
     Active Substance: CEVIMELINE HYDROCHLORIDE
  3. CALCIUM WITH 400 I.U. VIT D [Concomitant]
  4. PROLIA [Suspect]
     Active Substance: DENOSUMAB
     Indication: OSTEOPOROSIS
     Dosage: ?          QUANTITY:1 INJECTION(S);OTHER FREQUENCY:Q 6 MONTHS;?
     Route: 030
     Dates: start: 20171102, end: 20180721
  5. CLONAZEPAM. [Concomitant]
     Active Substance: CLONAZEPAM
  6. ZOMIG ZMT [Concomitant]
     Active Substance: ZOLMITRIPTAN
  7. ZANTAC [Concomitant]
     Active Substance: RANITIDINE HYDROCHLORIDE
  8. OXYCODONE [Concomitant]
     Active Substance: OXYCODONE
  9. RESTORIL [Concomitant]
     Active Substance: TEMAZEPAM
  10. MELATONIN [Concomitant]
     Active Substance: MELATONIN

REACTIONS (4)
  - Arthralgia [None]
  - Balance disorder [None]
  - Gait disturbance [None]
  - Rash [None]

NARRATIVE: CASE EVENT DATE: 20180706
